FAERS Safety Report 9550585 (Version 2)
Quarter: 2014Q2

REPORT INFORMATION
  Report Type: Spontaneous
  Country: US (occurrence: US)
  Receive Date: 20130924
  Receipt Date: 20140402
  Transmission Date: 20141212
  Serious: No
  Sender: FDA-Public Use
  Company Number: US-SANOFI-AVENTIS-2013SA036832

PATIENT
  Age: 54 Year
  Sex: Female

DRUGS (12)
  1. AUBAGIO [Suspect]
     Indication: MULTIPLE SCLEROSIS
     Route: 048
     Dates: start: 20121219
  2. BACLOFEN [Concomitant]
  3. LYRICA [Concomitant]
  4. HYDROCODONE [Concomitant]
  5. CYMBALTA [Concomitant]
  6. OXYBUTYNIN [Concomitant]
  7. METAXALONE [Concomitant]
  8. LORAZEPAM [Concomitant]
  9. OXYCONTIN [Concomitant]
  10. CARBAMAZEPINE [Concomitant]
  11. DETROL [Concomitant]
  12. VITAMIN D [Concomitant]

REACTIONS (4)
  - Muscle spasms [Unknown]
  - Cough [Unknown]
  - Alopecia [Unknown]
  - Drug dose omission [Unknown]
